FAERS Safety Report 11680487 (Version 3)
Quarter: 2015Q4

REPORT INFORMATION
  Report Type: Spontaneous
  Country: US (occurrence: US)
  Receive Date: 20151027
  Receipt Date: 20151110
  Transmission Date: 20160304
  Serious: No
  Sender: FDA-Public Use
  Company Number: US-ELI_LILLY_AND_COMPANY-US201009007036

PATIENT
  Age: 69 Year
  Sex: Female

DRUGS (4)
  1. FORTEO [Suspect]
     Active Substance: TERIPARATIDE
     Dosage: 20 UG, QD
     Route: 065
  2. FORTEO [Suspect]
     Active Substance: TERIPARATIDE
     Indication: OSTEOPOROSIS
     Dosage: 20 UG, DAILY (1/D)
     Route: 065
     Dates: start: 201009
  3. FORTEO [Suspect]
     Active Substance: TERIPARATIDE
     Dosage: 20 UG, DAILY (1/D)
     Route: 065
  4. FORTEO [Suspect]
     Active Substance: TERIPARATIDE
     Dosage: 20 UG, QD
     Route: 065
     Dates: start: 201203

REACTIONS (11)
  - Muscle spasms [Unknown]
  - Nausea [Unknown]
  - Fatigue [Unknown]
  - Injection site pain [Unknown]
  - Heart rate increased [Unknown]
  - Injection site bruising [Not Recovered/Not Resolved]
  - Arthralgia [Unknown]
  - Blood pressure decreased [Unknown]
  - Pain [Unknown]
  - Dizziness [Unknown]
  - Underdose [Not Recovered/Not Resolved]

NARRATIVE: CASE EVENT DATE: 201203
